FAERS Safety Report 11603631 (Version 1)
Quarter: 2015Q4

REPORT INFORMATION
  Report Type: Spontaneous
  Country: US (occurrence: US)
  Receive Date: 20151007
  Receipt Date: 20151007
  Transmission Date: 20160304
  Serious: No
  Sender: FDA-Public Use
  Company Number: US-PAR PHARMACEUTICAL, INC-2015SCPR014041

PATIENT

DRUGS (2)
  1. FENTANYL TRANSDERMAL SYSTEM [Suspect]
     Active Substance: FENTANYL
     Indication: NEURALGIA
     Dosage: 1 DF, EVERY 48 HOURS
     Route: 062
     Dates: start: 20150605, end: 201506
  2. FENTANYL TRANSDERMAL SYSTEM [Suspect]
     Active Substance: FENTANYL
     Dosage: 2 DF, EVERY 48 HOURS
     Route: 062
     Dates: start: 20150608

REACTIONS (4)
  - Product adhesion issue [Unknown]
  - Product quality issue [Unknown]
  - Gait disturbance [Not Recovered/Not Resolved]
  - Drug ineffective [Not Recovered/Not Resolved]

NARRATIVE: CASE EVENT DATE: 201506
